FAERS Safety Report 16538579 (Version 3)
Quarter: 2019Q4

REPORT INFORMATION
  Report Type: Spontaneous
  Country: CA (occurrence: CA)
  Receive Date: 20190708
  Receipt Date: 20191004
  Transmission Date: 20200122
  Serious: Yes (Death, Other)
  Sender: FDA-Public Use
  Company Number: CA-TEVA-2019-CA-1072530

PATIENT
  Age: 61 Year
  Sex: Female

DRUGS (3)
  1. BLEOMYCIN SULPHATE [Suspect]
     Active Substance: BLEOMYCIN SULFATE
     Indication: GERM CELL CANCER
     Route: 065
  2. CISPLATIN INJECTION [Suspect]
     Active Substance: CISPLATIN
     Indication: GERM CELL CANCER
     Route: 065
  3. ETOPOSIDE. [Suspect]
     Active Substance: ETOPOSIDE
     Indication: GERM CELL CANCER
     Route: 065

REACTIONS (1)
  - Pulmonary fibrosis [Fatal]
